FAERS Safety Report 9434912 (Version 2)
Quarter: 2013Q4

REPORT INFORMATION
  Report Type: Spontaneous
  Country: US (occurrence: US)
  Receive Date: 20130801
  Receipt Date: 20131219
  Transmission Date: 20140711
  Serious: Yes (Hospitalization, Other)
  Sender: FDA-Public Use
  Company Number: CHPA2013US011745

PATIENT
  Age: 70 Year
  Sex: Female

DRUGS (2)
  1. EXCEDRIN UNKNOWN [Suspect]
     Indication: ARTHRITIS
     Dosage: 1 DF, QD
     Route: 048
  2. EXCEDRIN UNKNOWN [Suspect]
     Indication: OFF LABEL USE

REACTIONS (4)
  - Diverticulitis [Recovered/Resolved]
  - Abdominal abscess [Recovered/Resolved]
  - Malaise [Unknown]
  - Incorrect drug administration duration [Unknown]
